FAERS Safety Report 7867854-8 (Version None)
Quarter: 2011Q4

REPORT INFORMATION
  Report Type: 
  Country: None (occurrence: None)
  Receive Date: 20111028
  Receipt Date: 20111019
  Transmission Date: 20120403
  Serious: Yes (Hospitalization)
  Sender: FDA-Public Use
  Company Number: JP-JNJFOC-20111010490

PATIENT
  Age: 38 Year
  Sex: Male

DRUGS (4)
  1. REMICADE [Suspect]
     Route: 042
     Dates: start: 20050101
  2. REMICADE [Suspect]
     Indication: CROHN'S DISEASE
     Route: 042
     Dates: start: 20091221
  3. AZATHIOPRINE SODIUM [Suspect]
     Dates: start: 20091221, end: 20100801
  4. AZATHIOPRINE SODIUM [Suspect]
     Indication: CROHN'S DISEASE
     Dates: start: 20050801, end: 20090901

REACTIONS (2)
  - GASTROENTERITIS [None]
  - HEPATIC NEOPLASM MALIGNANT [None]
